FAERS Safety Report 19221781 (Version 1)
Quarter: 2021Q2

REPORT INFORMATION
  Report Type: Spontaneous
  Country: PL (occurrence: PL)
  Receive Date: 20210506
  Receipt Date: 20210506
  Transmission Date: 20210717
  Serious: Yes (Hospitalization)
  Sender: FDA-Public Use
  Company Number: PL-TEVA-2021-PL-1907006

PATIENT
  Age: 63 Year
  Sex: Female

DRUGS (20)
  1. PROPRANOLOL [Suspect]
     Active Substance: PROPRANOLOL HYDROCHLORIDE
     Indication: CARDIAC FAILURE CHRONIC
     Dosage: 120 MILLIGRAM DAILY;
     Route: 065
  2. POTASSIUM [Concomitant]
     Active Substance: POTASSIUM
     Indication: PRODUCT USED FOR UNKNOWN INDICATION
     Route: 065
  3. METHIMAZOLE. [Suspect]
     Active Substance: METHIMAZOLE
     Dosage: 80 MILLIGRAM DAILY;
     Route: 065
  4. BETALOC [Suspect]
     Active Substance: METOPROLOL
     Indication: CARDIAC FAILURE CHRONIC
     Dosage: 20 MILLIGRAM DAILY; USING AN INFUSION PUMP
     Route: 041
  5. PROPRANOLOL [Suspect]
     Active Substance: PROPRANOLOL HYDROCHLORIDE
     Indication: TOXIC GOITRE
  6. LITHIUM CARBONATE. [Suspect]
     Active Substance: LITHIUM CARBONATE
     Indication: TOXIC GOITRE
     Dosage: 1000 MILLIGRAM DAILY; 1000 MG/D IN FOUR DOSES, ONCE EVERY 6H
     Route: 065
  7. RAMIPRIL. [Suspect]
     Active Substance: RAMIPRIL
     Indication: CARDIAC FAILURE CHRONIC
     Dosage: 2.5 MILLIGRAM DAILY;
     Route: 048
  8. DIGOXIN. [Suspect]
     Active Substance: DIGOXIN
     Indication: CARDIAC FAILURE CHRONIC
     Dosage: .25 MILLIGRAM DAILY;
     Route: 048
  9. METHIMAZOLE. [Suspect]
     Active Substance: METHIMAZOLE
     Indication: TOXIC GOITRE
     Dosage: 60 MILLIGRAM DAILY;
     Route: 065
  10. FUROSEMIDE. [Suspect]
     Active Substance: FUROSEMIDE
     Indication: CARDIAC FAILURE CHRONIC
     Dosage: 40 MILLIGRAM DAILY;
     Route: 048
  11. PROPYLTHIOURACIL. [Suspect]
     Active Substance: PROPYLTHIOURACIL
     Indication: TOXIC GOITRE
     Dosage: 800 MILLIGRAM DAILY;
     Route: 065
  12. DEXAVEN [Suspect]
     Active Substance: DEXAMETHASONE
     Indication: TOXIC GOITRE
     Dosage: 8 MILLIGRAM DAILY;
     Route: 042
  13. DIGOXIN. [Suspect]
     Active Substance: DIGOXIN
     Indication: CARDIAC FAILURE CHRONIC
     Dosage: .5 MILLIGRAM DAILY;
     Route: 042
  14. DIGOXIN. [Suspect]
     Active Substance: DIGOXIN
     Indication: ATRIAL FIBRILLATION
  15. PROPRANOLOL [Suspect]
     Active Substance: PROPRANOLOL HYDROCHLORIDE
     Indication: ATRIAL FIBRILLATION
     Dosage: 180 MILLIGRAM DAILY;
     Route: 065
  16. LUGOL [Suspect]
     Active Substance: IODINE\POTASSIUM IODIDE
     Indication: TOXIC GOITRE
     Dosage: 30 DOSAGE FORMS DAILY; 30 DROPS/DAY IN FOUR DOSES, ONCE EVERY 6H
     Route: 065
  17. BETALOC [Suspect]
     Active Substance: METOPROLOL
     Indication: ATRIAL FIBRILLATION
  18. BETALOC [Suspect]
     Active Substance: METOPROLOL
     Indication: TOXIC GOITRE
  19. DIGOXIN. [Suspect]
     Active Substance: DIGOXIN
     Indication: ATRIAL FIBRILLATION
  20. INSULIN [Concomitant]
     Active Substance: INSULIN NOS
     Indication: DIABETES MELLITUS
     Route: 065

REACTIONS (2)
  - Drug ineffective [Unknown]
  - Agranulocytosis [Recovered/Resolved]
